FAERS Safety Report 8791227 (Version 1)
Quarter: 2012Q4

REPORT INFORMATION
  Report Type: Spontaneous
  Country: US (occurrence: None)
  Receive Date: 20120914
  Receipt Date: 20120914
  Transmission Date: 20130627
  Serious: Yes (Hospitalization)
  Sender: FDA-Public Use
  Company Number: None

PATIENT
  Sex: Female
  Weight: 73.48 kg

DRUGS (1)
  1. AMRUBICIN [Suspect]
     Dosage: 60 mg, days 1-3, IV
     Route: 042
     Dates: start: 20120904, end: 20120906

REACTIONS (6)
  - Pallor [None]
  - Fatigue [None]
  - Dizziness [None]
  - Haemoglobin decreased [None]
  - Body temperature increased [None]
  - Chills [None]
